FAERS Safety Report 12914134 (Version 1)
Quarter: 2016Q4

REPORT INFORMATION
  Report Type: Spontaneous
  Country: SE (occurrence: SE)
  Receive Date: 20161105
  Receipt Date: 20161105
  Transmission Date: 20170207
  Serious: Yes (Hospitalization, Disabling)
  Sender: FDA-Public Use
  Company Number: SE-ASTRAZENECA-2016SF13355

PATIENT
  Age: 67 Year
  Sex: Male

DRUGS (8)
  1. FURIX [Concomitant]
     Active Substance: FUROSEMIDE
  2. METOPROLOL. [Concomitant]
     Active Substance: METOPROLOL
  3. NITROLINGUAL [Concomitant]
     Active Substance: NITROGLYCERIN
  4. ISOPHANE INSULIN [Concomitant]
     Active Substance: INSULIN NOS
  5. FORXIGA [Suspect]
     Active Substance: DAPAGLIFLOZIN
     Indication: TYPE 2 DIABETES MELLITUS
     Route: 048
     Dates: start: 20160922, end: 20160925
  6. LOSARTAN. [Concomitant]
     Active Substance: LOSARTAN
  7. SIMVASTATIN. [Concomitant]
     Active Substance: SIMVASTATIN
  8. ALVEDON [Concomitant]
     Active Substance: ACETAMINOPHEN

REACTIONS (8)
  - Carotid artery stenosis [Unknown]
  - Pyrexia [Unknown]
  - Confusional state [Unknown]
  - Hyponatraemia [Recovered/Resolved with Sequelae]
  - Dizziness [Unknown]
  - Encephalitis [Recovered/Resolved with Sequelae]
  - Hypotension [Unknown]
  - Fall [Unknown]

NARRATIVE: CASE EVENT DATE: 20150925
